FAERS Safety Report 10100993 (Version 26)
Quarter: 2017Q1

REPORT INFORMATION
  Report Type: Report from Study
  Country: CA (occurrence: CA)
  Receive Date: 20140424
  Receipt Date: 20170130
  Transmission Date: 20170428
  Serious: Yes (Other)
  Sender: FDA-Public Use
  Company Number: CA-ROCHE-1379381

PATIENT
  Age: 55 Year
  Sex: Female
  Weight: 120.31 kg

DRUGS (10)
  1. ACTEMRA [Suspect]
     Active Substance: TOCILIZUMAB
     Route: 042
     Dates: start: 20150305, end: 20150324
  2. PANTOLOC [Concomitant]
     Active Substance: PANTOPRAZOLE SODIUM
  3. ENBREL [Concomitant]
     Active Substance: ETANERCEPT
  4. DIPHENHYDRAMINE HCL [Concomitant]
     Active Substance: DIPHENHYDRAMINE HYDROCHLORIDE
     Indication: PREMEDICATION
     Route: 048
     Dates: start: 20140924, end: 20141008
  5. TYLENOL [Concomitant]
     Active Substance: ACETAMINOPHEN
     Route: 065
  6. ACTEMRA [Suspect]
     Active Substance: TOCILIZUMAB
     Indication: RHEUMATOID ARTHRITIS
     Route: 042
     Dates: start: 20140311, end: 20140422
  7. METHYLPREDNISOLONE. [Concomitant]
     Active Substance: METHYLPREDNISOLONE
     Indication: PREMEDICATION
     Route: 042
     Dates: start: 20140924, end: 20141008
  8. LORAZEPAM. [Concomitant]
     Active Substance: LORAZEPAM
  9. ACETAMINOPHEN. [Concomitant]
     Active Substance: ACETAMINOPHEN
     Indication: PREMEDICATION
     Route: 048
     Dates: start: 20140924, end: 20141008
  10. RITUXAN [Suspect]
     Active Substance: RITUXIMAB
     Indication: RHEUMATOID ARTHRITIS
     Dosage: DAY 1 AND 15.
     Route: 042
     Dates: start: 20140924

REACTIONS (60)
  - Internal haemorrhage [Unknown]
  - Haemoptysis [Unknown]
  - Headache [Unknown]
  - Vulvovaginal pain [Unknown]
  - Abdominal distension [Unknown]
  - Decreased appetite [Unknown]
  - Arthralgia [Unknown]
  - Fatigue [Unknown]
  - Trismus [Unknown]
  - Blood pressure increased [Unknown]
  - Asthenia [Not Recovered/Not Resolved]
  - Insomnia [Not Recovered/Not Resolved]
  - Ill-defined disorder [Not Recovered/Not Resolved]
  - Osteoporosis [Unknown]
  - Sneezing [Unknown]
  - Skin ulcer [Unknown]
  - Asthenia [Unknown]
  - Alopecia [Unknown]
  - Hypotension [Unknown]
  - Contrast media allergy [Unknown]
  - Blood pressure increased [Unknown]
  - Joint swelling [Unknown]
  - Diverticulitis [Unknown]
  - Nausea [Recovered/Resolved]
  - Chest discomfort [Not Recovered/Not Resolved]
  - Infusion related reaction [Unknown]
  - Change of bowel habit [Unknown]
  - Depression [Unknown]
  - Eye haemorrhage [Recovering/Resolving]
  - Weight decreased [Unknown]
  - Cough [Not Recovered/Not Resolved]
  - Nasal discharge discolouration [Not Recovered/Not Resolved]
  - Body temperature decreased [Unknown]
  - Blood pressure diastolic increased [Unknown]
  - Swelling [Unknown]
  - Chills [Not Recovered/Not Resolved]
  - Blood pressure abnormal [Unknown]
  - Weight increased [Unknown]
  - Pruritus [Unknown]
  - Asthma [Recovering/Resolving]
  - Pain [Not Recovered/Not Resolved]
  - Malaise [Unknown]
  - Weight decreased [Not Recovered/Not Resolved]
  - Drug ineffective [Unknown]
  - Epistaxis [Not Recovered/Not Resolved]
  - Haemorrhoids [Unknown]
  - Oedema [Unknown]
  - Emotional distress [Unknown]
  - Influenza [Recovering/Resolving]
  - Nasal ulcer [Unknown]
  - Loss of libido [Unknown]
  - Depression [Not Recovered/Not Resolved]
  - Fear [Not Recovered/Not Resolved]
  - Joint swelling [Unknown]
  - Eye pruritus [Unknown]
  - Abdominal distension [Unknown]
  - Pain [Unknown]
  - Bronchitis [Unknown]
  - Rheumatoid arthritis [Unknown]
  - Nasopharyngitis [Unknown]

NARRATIVE: CASE EVENT DATE: 20140407
